FAERS Safety Report 8499331-8 (Version None)
Quarter: 2012Q3

REPORT INFORMATION
  Report Type: 
  Country: None (occurrence: None)
  Receive Date: 20120710
  Receipt Date: 20120706
  Transmission Date: 20120928
  Serious: Yes (Hospitalization)
  Sender: FDA-Public Use
  Company Number: PHFR2012GB003885

PATIENT
  Sex: Female

DRUGS (8)
  1. CITALOPRAM HYDROBROMIDE [Concomitant]
     Dosage: 40 MG
     Route: 048
  2. SIMVASTATIN [Concomitant]
     Dosage: 20 MG
     Route: 048
  3. OMEPRAZOLE [Concomitant]
     Dosage: 20 MG, QD
     Route: 048
  4. LEVOTHYROXINE SODIUM [Concomitant]
     Dosage: 50 UG
     Route: 048
  5. LIRAGLUTIDE [Concomitant]
     Dosage: 1.25 MG, QD
     Route: 048
  6. CLOZARIL [Suspect]
     Dosage: UNK
  7. METFORMIN HCL [Concomitant]
     Dosage: 1 G, BID
     Route: 048
  8. GLICLAZIDE [Concomitant]
     Dosage: 160 MG
     Route: 048

REACTIONS (2)
  - CROHN'S DISEASE [None]
  - CONDITION AGGRAVATED [None]
